FAERS Safety Report 25947512 (Version 1)
Quarter: 2025Q4

REPORT INFORMATION
  Report Type: Spontaneous
  Country: GB (occurrence: GB)
  Receive Date: 20251022
  Receipt Date: 20251022
  Transmission Date: 20260118
  Serious: Yes (Other)
  Sender: STRIDES
  Company Number: GB-STRIDES ARCOLAB LIMITED-2025SP013058

PATIENT
  Age: 60 Year
  Sex: Male

DRUGS (3)
  1. ATORVASTATIN [Suspect]
     Active Substance: ATORVASTATIN
     Indication: Hypercholesterolaemia
     Dosage: UNK
     Route: 065
  2. VALSARTAN [Concomitant]
     Active Substance: VALSARTAN
     Indication: Essential hypertension
     Dosage: UNK
     Route: 065
  3. CEPHALEXIN [Concomitant]
     Active Substance: CEPHALEXIN
     Indication: Lower respiratory tract infection
     Dosage: 500 MG, EVERY 6 HRS
     Route: 065

REACTIONS (2)
  - Hallucination, auditory [Recovered/Resolved]
  - Headache [Recovered/Resolved]
